FAERS Safety Report 15746538 (Version 3)
Quarter: 2023Q1

REPORT INFORMATION
  Report Type: Report from Study
  Country: AU (occurrence: AU)
  Receive Date: 20181220
  Receipt Date: 20230327
  Transmission Date: 20230418
  Serious: Yes (Other)
  Sender: FDA-Public Use
  Company Number: AU-JNJFOC-20181211737

PATIENT
  Age: 54 Year
  Sex: Male
  Weight: 63 kg

DRUGS (9)
  1. INFLIXIMAB [Suspect]
     Active Substance: INFLIXIMAB
     Indication: Colitis ulcerative
     Route: 041
     Dates: start: 20180924
  2. INFLIXIMAB [Suspect]
     Active Substance: INFLIXIMAB
     Route: 041
     Dates: start: 20180928
  3. INFLIXIMAB [Suspect]
     Active Substance: INFLIXIMAB
     Route: 041
     Dates: start: 20181018
  4. INFLIXIMAB [Suspect]
     Active Substance: INFLIXIMAB
     Route: 041
     Dates: start: 20181105
  5. AZATHIOPRINE [Concomitant]
     Active Substance: AZATHIOPRINE
  6. MESALAMINE [Concomitant]
     Active Substance: MESALAMINE
  7. MESALAMINE [Concomitant]
     Active Substance: MESALAMINE
  8. PANTOPRAZOLE [Concomitant]
     Active Substance: PANTOPRAZOLE
  9. NIZATIDINE [Concomitant]
     Active Substance: NIZATIDINE
     Route: 065

REACTIONS (1)
  - Basal cell carcinoma [Not Recovered/Not Resolved]
